FAERS Safety Report 7085582 (Version 24)
Quarter: 2014Q3

REPORT INFORMATION
  Report Type: Spontaneous
  Country: US (occurrence: US)
  Receive Date: 20090819
  Receipt Date: 20140718
  Transmission Date: 20150326
  Serious: Yes (Death, Hospitalization, Other)
  Sender: FDA-Public Use
  Company Number: PHEH2009US09113

PATIENT
  Age: 79 Year
  Sex: Male

DRUGS (30)
  1. ZOMETA [Suspect]
     Active Substance: ZOLEDRONIC ACID
     Indication: PLASMA CELL MYELOMA
     Route: 041
     Dates: start: 200406, end: 200603
  2. MORPHINE [Suspect]
     Active Substance: MORPHINE
  3. HALDOL [Suspect]
     Active Substance: HALOPERIDOL
  4. LORAZEPAM. [Suspect]
     Active Substance: LORAZEPAM
  5. COLACE [Concomitant]
     Active Substance: DOCUSATE SODIUM
  6. LOPRESSOR [Concomitant]
     Active Substance: METOPROLOL TARTRATE
  7. MIRALAX [Concomitant]
     Active Substance: POLYETHYLENE GLYCOL 3350
  8. ZOMETA [Suspect]
     Active Substance: ZOLEDRONIC ACID
     Dosage: 4 MG, OT
     Route: 065
     Dates: start: 20060322
  9. DAPTOMYCIN [Concomitant]
     Active Substance: DAPTOMYCIN
  10. ATROVENT [Concomitant]
     Active Substance: IPRATROPIUM BROMIDE
  11. DOXYCYCLINE. [Concomitant]
     Active Substance: DOXYCYCLINE
  12. ZOMETA [Suspect]
     Active Substance: ZOLEDRONIC ACID
     Dosage: 4 MG, QMO
     Route: 042
  13. VELCADE [Concomitant]
     Active Substance: BORTEZOMIB
  14. ALTACE [Concomitant]
     Active Substance: RAMIPRIL
  15. ASPIRIN. [Concomitant]
     Active Substance: ASPIRIN
  16. REVLIMID [Concomitant]
     Active Substance: LENALIDOMIDE
  17. DEXAMETHASONE. [Concomitant]
     Active Substance: DEXAMETHASONE
  18. CIPROFLOXACIN. [Concomitant]
     Active Substance: CIPROFLOXACIN
  19. INSULIN [Concomitant]
     Active Substance: INSULIN NOS
  20. COUMADINE [Concomitant]
     Active Substance: WARFARIN SODIUM
  21. THALIDOMIDE [Concomitant]
     Active Substance: THALIDOMIDE
     Dosage: 100 MG, QHS
     Route: 048
  22. TRANSDERM SCOP [Suspect]
     Active Substance: SCOPOLAMINE
  23. GLIPIZIDE. [Concomitant]
     Active Substance: GLIPIZIDE
  24. PROVENTIL [Concomitant]
     Active Substance: ALBUTEROL
  25. LEVAQUIN [Concomitant]
     Active Substance: LEVOFLOXACIN
  26. HYDROCHLOROTHIAZIDE. [Concomitant]
     Active Substance: HYDROCHLOROTHIAZIDE
  27. PENICILLIN VK [Concomitant]
     Active Substance: PENICILLIN V POTASSIUM
  28. LACTOBACILLUS ACIDOPHILUS\LACTOBACILLUS BULGARICUS [Concomitant]
     Active Substance: LACTOBACILLUS ACIDOPHILUS\LACTOBACILLUS DELBRUECKII SUBSP. BULGARICUS
  29. ZOSYN [Concomitant]
     Active Substance: PIPERACILLIN SODIUM\TAZOBACTAM SODIUM
  30. METOPROLOL [Concomitant]
     Active Substance: METOPROLOL

REACTIONS (147)
  - Death [Fatal]
  - Pneumonia [Recovered/Resolved]
  - Lumbar vertebral fracture [Unknown]
  - Type 2 diabetes mellitus [Unknown]
  - Oedema peripheral [Unknown]
  - Osteoarthropathy [Unknown]
  - Lentigo [Unknown]
  - Intervertebral disc degeneration [Unknown]
  - Proteinuria [Unknown]
  - Aortic valve calcification [Unknown]
  - Metastases to bone [Unknown]
  - Soft tissue mass [Recovered/Resolved]
  - Hypertrophy [Unknown]
  - Aphagia [Unknown]
  - Generalised oedema [Unknown]
  - Somnolence [Unknown]
  - Nausea [Unknown]
  - Skin irritation [Unknown]
  - Skin disorder [Unknown]
  - Syncope [Recovered/Resolved]
  - Pain [Unknown]
  - Rhinitis allergic [Unknown]
  - Rash [Unknown]
  - Hypopnoea [Unknown]
  - Basal cell carcinoma [Unknown]
  - Cardiac failure congestive [Unknown]
  - Fall [Unknown]
  - Bone lesion [Unknown]
  - Intervertebral disc protrusion [Unknown]
  - Erythema [Unknown]
  - Fatigue [Unknown]
  - Skin cancer [Unknown]
  - Agitation [Unknown]
  - Stomatitis [Unknown]
  - Faecal incontinence [Unknown]
  - Urinary incontinence [Unknown]
  - Hypokalaemia [Unknown]
  - Osteonecrosis of jaw [Unknown]
  - Tooth loss [Unknown]
  - Type 1 diabetes mellitus [Unknown]
  - Neuropathy peripheral [Unknown]
  - Weight decreased [Unknown]
  - Gait disturbance [Unknown]
  - Pancytopenia [Unknown]
  - Blood cholesterol increased [Unknown]
  - Loose tooth [Unknown]
  - Hypoaesthesia [Unknown]
  - Osteoarthritis [Unknown]
  - Ligament disorder [Unknown]
  - Cough [Unknown]
  - Malignant neoplasm progression [Unknown]
  - Spinal deformity [Unknown]
  - Scoliosis [Unknown]
  - Troponin increased [Unknown]
  - Hypotension [Recovered/Resolved]
  - Pyuria [Unknown]
  - Melaena [Unknown]
  - Bronchitis [Unknown]
  - Apnoea [Unknown]
  - Pain in extremity [Recovered/Resolved]
  - Second primary malignancy [Unknown]
  - Constipation [Recovering/Resolving]
  - Gingivitis [Unknown]
  - Ligament sprain [Unknown]
  - Paraesthesia [Unknown]
  - Hypoalbuminaemia [Unknown]
  - Monoclonal gammopathy [Unknown]
  - Haemorrhoids [Unknown]
  - Dehydration [Unknown]
  - Contusion [Unknown]
  - Pulmonary congestion [Unknown]
  - Moaning [Unknown]
  - Dysphagia [Unknown]
  - Pathological fracture [Recovered/Resolved]
  - Urinary tract infection [Unknown]
  - Periodontitis [Unknown]
  - Orthostatic hypotension [Unknown]
  - Hyperplasia [Unknown]
  - Melanocytic naevus [Unknown]
  - Bursitis [Unknown]
  - Hyperlipidaemia [Unknown]
  - Asthenia [Unknown]
  - Incontinence [Unknown]
  - Pleural effusion [Unknown]
  - Albuminuria [Unknown]
  - Large intestine polyp [Unknown]
  - Plasma cell myeloma [Unknown]
  - Eye pain [Unknown]
  - Diarrhoea [Unknown]
  - Atrial fibrillation [Recovered/Resolved]
  - Injury [Unknown]
  - Emotional distress [Unknown]
  - Arteriosclerosis coronary artery [Unknown]
  - Muscle strain [Recovered/Resolved]
  - Metastatic malignant melanoma [Unknown]
  - Bundle branch block bilateral [Unknown]
  - Spinal column stenosis [Unknown]
  - Mitral valve incompetence [Unknown]
  - Bradycardia [Unknown]
  - Sinus bradycardia [Unknown]
  - Lung disorder [Unknown]
  - Plasma cell myeloma in remission [Recovering/Resolving]
  - Sputum discoloured [Unknown]
  - Dysstasia [Unknown]
  - Cachexia [Unknown]
  - Rhonchi [Unknown]
  - Arthropathy [Unknown]
  - Angina pectoris [Recovered/Resolved]
  - Thrombocytopenia [Recovered/Resolved]
  - Back pain [Unknown]
  - Thoracic vertebral fracture [Unknown]
  - Infection [Unknown]
  - Anxiety [Unknown]
  - Hyperglycaemia [Unknown]
  - Coronary artery disease [Unknown]
  - Upper respiratory tract infection [Unknown]
  - Conjunctivitis [Unknown]
  - Ocular hyperaemia [Unknown]
  - Squamous cell carcinoma [Unknown]
  - Actinic keratosis [Unknown]
  - Decreased appetite [Unknown]
  - Glossitis [Unknown]
  - Atelectasis [Unknown]
  - Increased viscosity of bronchial secretion [Unknown]
  - Dyslipidaemia [Unknown]
  - Aspiration [Unknown]
  - Stress [Unknown]
  - Deformity [Unknown]
  - Hypertension [Unknown]
  - Anaemia [Unknown]
  - Blepharitis [Unknown]
  - Arthralgia [Recovered/Resolved]
  - Rotator cuff syndrome [Unknown]
  - Nasal septum deviation [Unknown]
  - Failure to thrive [Unknown]
  - Altered state of consciousness [Unknown]
  - Spinal osteoarthritis [Unknown]
  - Lung infection [Unknown]
  - Aortic stenosis [Unknown]
  - Polychromasia [Unknown]
  - Large intestine benign neoplasm [Unknown]
  - Wound [Unknown]
  - Limb injury [Unknown]
  - Rales [Unknown]
  - Confusional state [Unknown]
  - Productive cough [Unknown]
  - Conjunctivitis bacterial [Unknown]

NARRATIVE: CASE EVENT DATE: 20110126
